FAERS Safety Report 6017118-2 (Version None)
Quarter: 2008Q4

REPORT INFORMATION
  Report Type: 
  Country: None (occurrence: None)
  Receive Date: 20081223
  Receipt Date: 20081216
  Transmission Date: 20090506
  Serious: Yes (Hospitalization)
  Sender: FDA-Public Use
  Company Number: DE-BAXTER-2008BH013907

PATIENT
  Age: 43 Year
  Sex: Female
  Weight: 52 kg

DRUGS (7)
  1. CYCLOPHOSPHAMIDE [Suspect]
     Indication: BREAST CANCER
     Route: 042
     Dates: start: 20080627, end: 20080723
  2. PACLITAXEL [Suspect]
     Indication: BREAST CANCER
     Route: 042
     Dates: start: 20080514, end: 20080611
  3. EPIRUBICIN [Suspect]
     Indication: BREAST CANCER
     Route: 042
     Dates: start: 20080318, end: 20080423
  4. ALOXI [Concomitant]
     Dates: start: 20080723, end: 20080723
  5. FORTECORTIN [Concomitant]
     Dates: start: 20080723, end: 20080723
  6. MESNA [Concomitant]
     Dates: start: 20080723, end: 20080723
  7. NEULASTA [Concomitant]
     Dates: start: 20080724, end: 20080724

REACTIONS (1)
  - GENITAL HERPES [None]
